FAERS Safety Report 12508412 (Version 2)
Quarter: 2016Q3

REPORT INFORMATION
  Report Type: Spontaneous
  Country: BR (occurrence: BR)
  Receive Date: 20160629
  Receipt Date: 20160705
  Transmission Date: 20161109
  Serious: Yes (Hospitalization, Other)
  Sender: FDA-Public Use
  Company Number: BR-PFIZER INC-2016309370

PATIENT
  Age: 14 Year
  Sex: Female
  Weight: 61 kg

DRUGS (1)
  1. ZOLOFT [Suspect]
     Active Substance: SERTRALINE HYDROCHLORIDE
     Indication: ANXIETY
     Dosage: 50 MG, DAILY
     Route: 048
     Dates: start: 2015, end: 201606

REACTIONS (10)
  - Amnesia [Unknown]
  - Muscle spasms [Unknown]
  - Seizure [Unknown]
  - Confusional state [Unknown]
  - Galactorrhoea [Unknown]
  - Cerebral disorder [Unknown]
  - Syncope [Unknown]
  - Epilepsy [Unknown]
  - Product use issue [Unknown]
  - Hallucination, auditory [Unknown]

NARRATIVE: CASE EVENT DATE: 2015
